FAERS Safety Report 18756103 (Version 2)
Quarter: 2021Q1

REPORT INFORMATION
  Report Type: Report from Study
  Country: GB (occurrence: GB)
  Receive Date: 20210119
  Receipt Date: 20210127
  Transmission Date: 20210419
  Serious: Yes (Death, Hospitalization, Other)
  Sender: FDA-Public Use
  Company Number: NVSC2021GB010766

PATIENT
  Sex: Female
  Weight: 136.1 kg

DRUGS (1)
  1. COSENTYX [Suspect]
     Active Substance: SECUKINUMAB
     Indication: PSORIASIS
     Dosage: 300 MG, Q4W
     Route: 065
     Dates: start: 20180512

REACTIONS (3)
  - COVID-19 [Fatal]
  - Pneumonia [Fatal]
  - Dyspnoea [Fatal]

NARRATIVE: CASE EVENT DATE: 202012
